FAERS Safety Report 16154424 (Version 2)
Quarter: 2019Q2

REPORT INFORMATION
  Report Type: Spontaneous
  Country: GR (occurrence: GR)
  Receive Date: 20190403
  Receipt Date: 20190601
  Transmission Date: 20190711
  Serious: Yes (Other)
  Sender: FDA-Public Use
  Company Number: GR-ACCORD-117601

PATIENT
  Age: 63 Year
  Sex: Female

DRUGS (7)
  1. ENBREL [Suspect]
     Active Substance: ETANERCEPT
     Indication: PRODUCT USED FOR UNKNOWN INDICATION
     Dosage: STRENGTH: 50 MG
     Route: 030
     Dates: start: 2009, end: 2011
  2. FILICINE [Concomitant]
     Dosage: STRENGTH: 5 MG/TAB
     Route: 048
  3. METHOTREXATE. [Suspect]
     Active Substance: METHOTREXATE
     Indication: PRODUCT USED FOR UNKNOWN INDICATION
     Route: 048
     Dates: start: 2006
  4. SINTROM [Concomitant]
     Active Substance: ACENOCOUMAROL
     Dosage: STRENGTH: 4 MG, TAB
     Route: 048
  5. ACTONEL [Concomitant]
     Active Substance: RISEDRONATE SODIUM
     Dosage: STRENGTH: 75 MG
     Route: 048
     Dates: start: 2011, end: 2011
  6. MEDROL [Concomitant]
     Active Substance: METHYLPREDNISOLONE
     Route: 048
     Dates: start: 2006
  7. PROPAFENONE HCL [Concomitant]
     Active Substance: PROPAFENONE HYDROCHLORIDE
     Dosage: STRENGTH: 150 MG
     Route: 048

REACTIONS (1)
  - B-cell lymphoma [Not Recovered/Not Resolved]

NARRATIVE: CASE EVENT DATE: 2011
